FAERS Safety Report 25505660 (Version 1)
Quarter: 2025Q3

REPORT INFORMATION
  Report Type: Report from Study
  Country: CA (occurrence: CA)
  Receive Date: 20250702
  Receipt Date: 20250702
  Transmission Date: 20251020
  Serious: Yes (Other)
  Sender: TEVA
  Company Number: CA-TEVA-VS-3346897

PATIENT
  Age: 57 Year
  Sex: Female

DRUGS (4)
  1. PREDNISONE [Suspect]
     Active Substance: PREDNISONE
     Indication: Product used for unknown indication
     Route: 065
  2. PREDNISONE [Suspect]
     Active Substance: PREDNISONE
     Indication: Product used for unknown indication
     Route: 065
  3. PREDNISONE [Suspect]
     Active Substance: PREDNISONE
     Indication: Product used for unknown indication
     Route: 048
  4. RITUXIMAB [Suspect]
     Active Substance: RITUXIMAB
     Indication: Rheumatoid arthritis
     Route: 042

REACTIONS (15)
  - Loss of personal independence in daily activities [Unknown]
  - Blood pressure increased [Unknown]
  - Rheumatoid arthritis [Unknown]
  - Irritability [Unknown]
  - Swollen tongue [Unknown]
  - Muscle atrophy [Unknown]
  - Drug ineffective [Unknown]
  - Rotator cuff syndrome [Unknown]
  - C-reactive protein abnormal [Unknown]
  - Vision blurred [Unknown]
  - Confusional state [Unknown]
  - Emotional disorder [Unknown]
  - Sedation [Unknown]
  - Dry eye [Unknown]
  - Tongue coated [Unknown]
